FAERS Safety Report 13334389 (Version 1)
Quarter: 2017Q1

REPORT INFORMATION
  Report Type: Report from Study
  Country: US (occurrence: US)
  Receive Date: 20170314
  Receipt Date: 20170314
  Transmission Date: 20170428
  Serious: Yes (Hospitalization)
  Sender: FDA-Public Use
  Company Number: US-PFIZER INC-2017096571

PATIENT
  Age: 75 Year
  Sex: Male

DRUGS (1)
  1. OXYMETAZOLINE [Suspect]
     Active Substance: OXYMETAZOLINE
     Indication: SINUSITIS
     Dosage: UNK UNK, DAILY
     Route: 045

REACTIONS (2)
  - Vasculitis necrotising [Recovering/Resolving]
  - Vasculitis cerebral [Recovering/Resolving]
